FAERS Safety Report 9907458 (Version 1)
Quarter: 2014Q1

REPORT INFORMATION
  Report Type: Spontaneous
  Country: CA (occurrence: CA)
  Receive Date: 20140218
  Receipt Date: 20140218
  Transmission Date: 20141002
  Serious: Yes (Death, Hospitalization, Other)
  Sender: FDA-Public Use
  Company Number: CA-BAXTER-2014BAX007476

PATIENT
  Age: 51 Year
  Sex: Male

DRUGS (3)
  1. DIANEAL PD4 SOLUTION WITH 1.5% DEXTROSE AND 2.5 MEQ/L CALCIUM [Suspect]
     Indication: DIABETIC END STAGE RENAL DISEASE
     Route: 033
     Dates: start: 2010, end: 20140209
  2. DIANEAL PD4 SOLUTION WITH 2.5% DEXTROSE AND 2.5 MEQ/L CALCIUM [Suspect]
     Indication: DIABETIC END STAGE RENAL DISEASE
     Route: 033
     Dates: start: 2010, end: 20140209
  3. EXTRANEAL [Suspect]
     Indication: DIABETIC END STAGE RENAL DISEASE
     Route: 033
     Dates: start: 2010, end: 20140209

REACTIONS (4)
  - Death [Fatal]
  - Peripheral arterial occlusive disease [Recovered/Resolved]
  - Gangrene [Recovered/Resolved]
  - Necrosis [Recovered/Resolved]
